FAERS Safety Report 6944344-8 (Version None)
Quarter: 2010Q3

REPORT INFORMATION
  Report Type: 
  Country: None (occurrence: None)
  Receive Date: 20100827
  Receipt Date: 20100819
  Transmission Date: 20110219
  Serious: No
  Sender: FDA-Public Use
  Company Number: US-BIOGENIDEC-2010BI029107

PATIENT
  Age: 16 Year
  Sex: Male

DRUGS (1)
  1. AVONEX [Suspect]
     Indication: MULTIPLE SCLEROSIS
     Route: 030
     Dates: start: 20071201, end: 20080901

REACTIONS (3)
  - BALANCE DISORDER [None]
  - FATIGUE [None]
  - MUSCULAR WEAKNESS [None]
